FAERS Safety Report 8924430 (Version 1)
Quarter: 2012Q4

REPORT INFORMATION
  Report Type: Spontaneous
  Country: US (occurrence: None)
  Receive Date: 20121116
  Receipt Date: 20121116
  Transmission Date: 20130627
  Serious: Yes (Hospitalization)
  Sender: FDA-Public Use
  Company Number: 141632

PATIENT
  Age: 34 Year
  Sex: Female

DRUGS (1)
  1. LORAZEPAM [Suspect]
     Route: 048

REACTIONS (12)
  - Medication error [None]
  - Overdose [None]
  - Unresponsive to stimuli [None]
  - Heart rate increased [None]
  - Blood pressure increased [None]
  - Oxygen saturation decreased [None]
  - Mydriasis [None]
  - Pupillary reflex impaired [None]
  - Coma scale abnormal [None]
  - Troponin increased [None]
  - Drug screen positive [None]
  - Stress cardiomyopathy [None]
